FAERS Safety Report 6633011 (Version 4)
Quarter: 2023Q4

REPORT INFORMATION
  Report Type: Spontaneous
  Country: US (occurrence: US)
  Receive Date: 20080506
  Receipt Date: 20231212
  Transmission Date: 20240110
  Serious: Yes (Hospitalization)
  Sender: FDA-Public Use
  Company Number: US-BAYER-200821714NA

PATIENT
  Age: 35 Year
  Sex: Female
  Weight: 59.545 kg

DRUGS (1)
  1. MIRENA [Suspect]
     Active Substance: LEVONORGESTREL
     Indication: Contraception
     Dosage: 20?G/DAY
     Route: 015
     Dates: start: 20071022, end: 20080328

REACTIONS (5)
  - Uterine perforation [Recovered/Resolved]
  - Procedural pain [Recovered/Resolved]
  - Abdominal discomfort [Recovered/Resolved]
  - Abdominal pain lower [Recovered/Resolved]
  - Incision site abscess [Recovered/Resolved]

NARRATIVE: CASE EVENT DATE: 20071022
